FAERS Safety Report 16482350 (Version 2)
Quarter: 2019Q3

REPORT INFORMATION
  Report Type: Spontaneous
  Country: JP (occurrence: JP)
  Receive Date: 20190627
  Receipt Date: 20190705
  Transmission Date: 20191004
  Serious: Yes (Hospitalization, Other)
  Sender: FDA-Public Use
  Company Number: JP-ROCHE-2343801

PATIENT
  Age: 76 Year
  Sex: Male

DRUGS (5)
  1. LEVOFOLINATE DE CALCIUM [Concomitant]
     Active Substance: LEVOLEUCOVORIN CALCIUM
     Indication: RECTAL CANCER
     Dosage: DOSE INTERVAL UNCERTAINTY
     Route: 041
  2. IRINOTECAN HYDROCHLORIDE. [Concomitant]
     Active Substance: IRINOTECAN HYDROCHLORIDE
     Indication: RECTAL CANCER
     Dosage: DOSE INTERVAL UNCERTAINTY
     Route: 041
  3. FLUOROURACIL. [Concomitant]
     Active Substance: FLUOROURACIL
     Dosage: CONTINUOUS INTRAVENOUS INFUSION AND DOSE INTERVAL UNCERTAINTY
     Route: 041
  4. AVASTIN [Suspect]
     Active Substance: BEVACIZUMAB
     Indication: RECTAL CANCER
     Dosage: DOSE INTERVAL UNCERTAINTY
     Route: 041
  5. FLUOROURACIL. [Concomitant]
     Active Substance: FLUOROURACIL
     Indication: RECTAL CANCER
     Dosage: RAPID INTRAVENOUS INJECTION AND DOSE INTERVAL UNCERTAINTY
     Route: 041

REACTIONS (6)
  - Hyperammonaemia [Recovering/Resolving]
  - Circulatory collapse [Unknown]
  - Renal impairment [Unknown]
  - Metabolic acidosis [Unknown]
  - Pneumonia aspiration [Unknown]
  - Diarrhoea [Unknown]
